FAERS Safety Report 5861844-2 (Version None)
Quarter: 2008Q3

REPORT INFORMATION
  Report Type: 
  Country: None (occurrence: None)
  Receive Date: 20080826
  Receipt Date: 20080813
  Transmission Date: 20090109
  Serious: Yes (Hospitalization)
  Sender: FDA-Public Use
  Company Number: DSA_32293_2008

PATIENT
  Age: 81 Year
  Sex: Male

DRUGS (2)
  1. LORAZEPAM [Suspect]
     Indication: ANXIETY DISORDER
     Dosage: 7.25 MG QD ORAL
     Route: 048
     Dates: start: 20080201
  2. SIMVASTATIN [Suspect]
     Indication: DYSLIPIDAEMIA
     Dosage: 40 MG QD ORAL
     Route: 048
     Dates: start: 20080201

REACTIONS (2)
  - DIALYSIS [None]
  - RHABDOMYOLYSIS [None]
